FAERS Safety Report 15456335 (Version 6)
Quarter: 2018Q4

REPORT INFORMATION
  Report Type: Spontaneous
  Country: DE (occurrence: DE)
  Receive Date: 20181002
  Receipt Date: 20181127
  Transmission Date: 20190204
  Serious: Yes (Other)
  Sender: FDA-Public Use
  Company Number: PHHY2018DE109783

PATIENT
  Age: 65 Year
  Sex: Male
  Weight: 68 kg

DRUGS (13)
  1. RITUXIMAB. [Suspect]
     Active Substance: RITUXIMAB
     Indication: DIFFUSE LARGE B-CELL LYMPHOMA STAGE II
     Route: 065
  2. VISCUM ALBUM EXTRACT [Concomitant]
     Dosage: 10 MG, UNK
     Route: 058
  3. DOXORUBICIN [Suspect]
     Active Substance: DOXORUBICIN
     Indication: DIFFUSE LARGE B-CELL LYMPHOMA STAGE II
     Route: 065
  4. BENDAMUSTINE [Suspect]
     Active Substance: BENDAMUSTINE
     Indication: DIFFUSE LARGE B-CELL LYMPHOMA STAGE II
     Dosage: UNK
     Route: 042
  5. VISCUM ALBUM EXTRACT [Concomitant]
     Indication: DIFFUSE LARGE B-CELL LYMPHOMA STAGE II
     Dosage: 1 MG, UNK
     Route: 058
  6. VISCUM ALBUM EXTRACT [Concomitant]
     Dosage: 5 MG, UNK
     Route: 058
  7. VISCUM ALBUM EXTRACT [Concomitant]
     Dosage: 30 MG, UNK
     Route: 058
  8. VISCUM ALBUM EXTRACT [Concomitant]
     Dosage: 50 MG, UNK
     Route: 058
     Dates: start: 200912, end: 201212
  9. CYCLOPHOSPHAMIDE. [Suspect]
     Active Substance: CYCLOPHOSPHAMIDE
     Indication: DIFFUSE LARGE B-CELL LYMPHOMA STAGE II
     Route: 065
  10. PREDNISOLONE. [Suspect]
     Active Substance: PREDNISOLONE
     Indication: DIFFUSE LARGE B-CELL LYMPHOMA STAGE II
     Route: 065
  11. TROFOSFAMIDE [Suspect]
     Active Substance: TROFOSFAMIDE
     Indication: DIFFUSE LARGE B-CELL LYMPHOMA STAGE II
     Route: 065
  12. VINCRISTINE [Suspect]
     Active Substance: VINCRISTINE
     Indication: DIFFUSE LARGE B-CELL LYMPHOMA STAGE II
     Route: 065
  13. VISCUM ALBUM EXTRACT [Concomitant]
     Dosage: 20 MG, UNK
     Route: 058

REACTIONS (5)
  - Drug resistance [Unknown]
  - Performance status decreased [Unknown]
  - Tumour pain [Recovered/Resolved]
  - Abdominal pain upper [Unknown]
  - Product use in unapproved indication [Unknown]
